FAERS Safety Report 9919170 (Version 1)
Quarter: 2014Q1

REPORT INFORMATION
  Report Type: Spontaneous
  Country: US (occurrence: US)
  Receive Date: 20140224
  Receipt Date: 20140224
  Transmission Date: 20141002
  Serious: Yes (Hospitalization)
  Sender: FDA-Public Use
  Company Number: US-ASTELLAS-2014US001653

PATIENT
  Sex: Female

DRUGS (1)
  1. ASTAGRAF XL [Suspect]
     Indication: RENAL TRANSPLANT
     Dosage: 4 MG, UID/QD
     Route: 048
     Dates: start: 20131121

REACTIONS (1)
  - Hospitalisation [Unknown]
